FAERS Safety Report 4768746-3 (Version None)
Quarter: 2005Q3

REPORT INFORMATION
  Report Type: 
  Country: None (occurrence: None)
  Receive Date: 20050914
  Receipt Date: 20050906
  Transmission Date: 20060218
  Serious: Yes (Other)
  Sender: FDA-Public Use
  Company Number: FR-LMS-050098

PATIENT
  Age: 77 Year
  Sex: Female

DRUGS (1)
  1. NABUCOX [Suspect]
     Dosage: 1G FOUR TIMES PER DAY
     Route: 048
     Dates: start: 20050816, end: 20050820

REACTIONS (1)
  - CONJUNCTIVAL HAEMORRHAGE [None]
